FAERS Safety Report 11077280 (Version 4)
Quarter: 2015Q2

REPORT INFORMATION
  Report Type: Spontaneous
  Country: PT (occurrence: PT)
  Receive Date: 20150429
  Receipt Date: 20150612
  Transmission Date: 20150821
  Serious: Yes (Death, Hospitalization)
  Sender: FDA-Public Use
  Company Number: PHHY2015PT048498

PATIENT
  Age: 52 Year
  Sex: Female

DRUGS (1)
  1. EVEROLIMUS [Suspect]
     Active Substance: EVEROLIMUS
     Indication: BREAST CANCER
     Dosage: 10 MG, UNK
     Route: 065

REACTIONS (4)
  - Haemorrhoids thrombosed [Unknown]
  - Hepatic failure [Fatal]
  - Rectal ulcer [Not Recovered/Not Resolved]
  - Malignant neoplasm progression [Fatal]
